FAERS Safety Report 6433617-3 (Version None)
Quarter: 2009Q4

REPORT INFORMATION
  Report Type: 
  Country: None (occurrence: None)
  Receive Date: 20091106
  Receipt Date: 20091106
  Transmission Date: 20100525
  Serious: Yes (Hospitalization)
  Sender: FDA-Public Use
  Company Number: None

PATIENT
  Age: 22 Year

DRUGS (1)
  1. MELOXICAM [Suspect]
     Indication: PAIN
     Dosage: 7.5 MG EVERY DAY PO
     Route: 048
     Dates: start: 20090301, end: 20090730

REACTIONS (1)
  - GASTROINTESTINAL HAEMORRHAGE [None]
